FAERS Safety Report 10060746 (Version 1)
Quarter: 2014Q2

REPORT INFORMATION
  Report Type: Report from Study
  Country: RU (occurrence: RU)
  Receive Date: 20140404
  Receipt Date: 20140404
  Transmission Date: 20141212
  Serious: Yes (Hospitalization)
  Sender: FDA-Public Use
  Company Number: 2014SP000969

PATIENT
  Age: 49 Year
  Sex: Female
  Weight: 72 kg

DRUGS (9)
  1. SM-13496 [Suspect]
     Indication: SCHIZOPHRENIA
     Route: 048
     Dates: start: 20140210, end: 20140323
  2. HALOPERIDOL [Concomitant]
     Indication: SCHIZOPHRENIA
     Route: 048
     Dates: start: 20140324
  3. HALOPERIDOL [Concomitant]
     Indication: SCHIZOPHRENIA
     Route: 030
     Dates: start: 20140127, end: 20140208
  4. PHENAZEPAM [Concomitant]
     Indication: SLEEP DISORDER
     Route: 048
     Dates: start: 20140303, end: 20140310
  5. PHENAZEPAM [Concomitant]
     Indication: SLEEP DISORDER
     Route: 048
     Dates: start: 20140127, end: 20140208
  6. CHLORPROMAZINE [Concomitant]
     Indication: SCHIZOPHRENIA
     Route: 048
     Dates: start: 20140324
  7. CHLORPROMAZINE [Concomitant]
     Indication: SCHIZOPHRENIA
     Route: 048
     Dates: start: 20140127, end: 20140208
  8. TRIHEXYPHENIDYL [Concomitant]
     Indication: PROPHYLAXIS
     Route: 048
     Dates: start: 20140324
  9. TRIHEXYPHENIDYL [Concomitant]
     Indication: PROPHYLAXIS
     Route: 048
     Dates: start: 20140213, end: 20140310

REACTIONS (1)
  - Psychotic disorder [Not Recovered/Not Resolved]
